FAERS Safety Report 7283168-1 (Version None)
Quarter: 2011Q1

REPORT INFORMATION
  Report Type: 
  Country: None (occurrence: None)
  Receive Date: 20110209
  Receipt Date: 20110126
  Transmission Date: 20110831
  Serious: Yes (Hospitalization)
  Sender: FDA-Public Use
  Company Number: JP-TEVA-266064ISR

PATIENT
  Age: 11 Year
  Sex: Female

DRUGS (5)
  1. CISPLATIN [Suspect]
     Indication: BONE SARCOMA
     Route: 042
  2. DOXORUBICIN HCL [Suspect]
     Indication: BONE SARCOMA
     Route: 042
  3. IFOSFAMIDE [Suspect]
     Indication: BONE SARCOMA
     Route: 042
  4. CARBOPLATIN [Suspect]
     Indication: BONE SARCOMA
     Route: 042
  5. ETOPOSIDE [Suspect]
     Indication: BONE SARCOMA
     Route: 042

REACTIONS (2)
  - NEOPLASM MALIGNANT [None]
  - EWING'S SARCOMA [None]
